FAERS Safety Report 8598781-9 (Version None)
Quarter: 2012Q3

REPORT INFORMATION
  Report Type: 
  Country: None (occurrence: None)
  Receive Date: 20120816
  Receipt Date: 20120806
  Transmission Date: 20120928
  Serious: Yes (Hospitalization)
  Sender: FDA-Public Use
  Company Number: US-GLAXOSMITHKLINE-A0750160A

PATIENT
  Age: 78 Year
  Sex: Male
  Weight: 93.2 kg

DRUGS (12)
  1. TRICOR [Concomitant]
  2. PROCARDIA [Concomitant]
  3. ENALAPRIL MALEATE [Concomitant]
  4. CATAPRES [Concomitant]
  5. GLUCOTROL [Concomitant]
  6. AVANDIA [Suspect]
     Indication: DIABETES MELLITUS
     Dosage: 4MG PER DAY
     Route: 048
     Dates: start: 20060202, end: 20070905
  7. JANUVIA [Concomitant]
  8. TRAMADOL [Concomitant]
  9. ARICEPT [Concomitant]
  10. LISINOPRIL [Concomitant]
  11. GLYBURIDE [Concomitant]
  12. NAMENDA [Concomitant]

REACTIONS (2)
  - CEREBROVASCULAR ACCIDENT [None]
  - HEART RATE IRREGULAR [None]
